FAERS Safety Report 9225363 (Version 2)
Quarter: 2013Q2

REPORT INFORMATION
  Report Type: Spontaneous
  Country: ES (occurrence: ES)
  Receive Date: 20130411
  Receipt Date: 20130417
  Transmission Date: 20140414
  Serious: Yes (Other)
  Sender: FDA-Public Use
  Company Number: ES-ROCHE-1212779

PATIENT
  Age: 74 Year
  Sex: Male

DRUGS (6)
  1. ZELBORAF [Suspect]
     Indication: METASTATIC MALIGNANT MELANOMA
     Route: 048
     Dates: start: 20130308, end: 20130405
  2. ZELBORAF [Suspect]
     Route: 048
     Dates: start: 20130413
  3. OMEPRAZOLE [Concomitant]
     Route: 048
  4. OMACOR [Concomitant]
     Route: 048
  5. PRADAXA [Concomitant]
     Route: 048
  6. SECALIP [Concomitant]
     Route: 046

REACTIONS (1)
  - Neutropenia [Recovered/Resolved]
